FAERS Safety Report 5397480-4 (Version None)
Quarter: 2007Q3

REPORT INFORMATION
  Report Type: 
  Country: None (occurrence: None)
  Receive Date: 20070723
  Receipt Date: 20070723
  Transmission Date: 20080115
  Serious: Yes (Other)
  Sender: FDA-Public Use
  Company Number: None

PATIENT
  Age: 54 Year
  Sex: Female
  Weight: 50.8029 kg

DRUGS (1)
  1. BOTULINUM TOXIN A - ALLERGAN CO. [Suspect]
     Indication: BLEPHAROSPASM
     Dosage: 1 UNIT ? 1X 060-096 EYE
     Route: 047
     Dates: start: 20070717

REACTIONS (9)
  - ARTHRALGIA [None]
  - DEPRESSION [None]
  - DIPLOPIA [None]
  - FACIAL PALSY [None]
  - FATIGUE [None]
  - FEELING ABNORMAL [None]
  - IMPAIRED WORK ABILITY [None]
  - INCORRECT DOSE ADMINISTERED [None]
  - VISUAL DISTURBANCE [None]
